FAERS Safety Report 8907074 (Version 1)
Quarter: 2012Q4

REPORT INFORMATION
  Report Type: 
  Country: FR (occurrence: FR)
  Receive Date: 20121114
  Receipt Date: 20121114
  Transmission Date: 20130627
  Serious: Yes (Death, Other)
  Sender: FDA-Public Use
  Company Number: PHHY2012FR104636

PATIENT
  Age: 57 Year
  Sex: Female

DRUGS (3)
  1. CISPLATIN [Suspect]
     Indication: THYROID CANCER
     Dosage: 40 mg/m2, every four weeks
     Dates: start: 200610, end: 200703
  2. DOXORUBICIN [Suspect]
     Indication: THYROID CANCER
     Dosage: 60 mg/m2, every 4 weeks
     Dates: start: 200610, end: 200703
  3. G-CSF [Concomitant]
     Indication: PROPHYLAXIS

REACTIONS (5)
  - Pleural effusion [Fatal]
  - Alopecia [Unknown]
  - Anaemia [Unknown]
  - Asthenia [Unknown]
  - Nausea [Unknown]
